FAERS Safety Report 9800696 (Version 2)
Quarter: 2014Q1

REPORT INFORMATION
  Report Type: Report from Study
  Country: HK (occurrence: HK)
  Receive Date: 20140107
  Receipt Date: 20140130
  Transmission Date: 20141002
  Serious: Yes (Death, Life-Threatening)
  Sender: FDA-Public Use
  Company Number: HK-ROCHE-1330040

PATIENT
  Age: 55 Year
  Sex: Female
  Weight: 50 kg

DRUGS (10)
  1. TRASTUZUMAB EMTANSINE [Suspect]
     Indication: BREAST CANCER METASTATIC
     Dosage: 3.6MG/KG ONCE EVERY 3 WEEKS?2 DOSES
     Route: 041
     Dates: start: 20131125, end: 20131216
  2. SANDOSTATIN [Concomitant]
     Route: 042
     Dates: start: 20131123, end: 20131231
  3. NEXIUM [Concomitant]
     Route: 042
     Dates: start: 20131109, end: 20140103
  4. ROCEPHIN [Concomitant]
     Route: 042
     Dates: start: 20131231, end: 20131231
  5. FLAGYL [Concomitant]
     Route: 042
     Dates: start: 20131231, end: 20131231
  6. IMOVANE [Concomitant]
     Route: 048
     Dates: start: 20131125, end: 20131231
  7. DEXAMETHASONE [Concomitant]
     Route: 042
     Dates: start: 20140102
  8. ZOFRAN [Concomitant]
     Indication: VOMITING
     Route: 042
     Dates: start: 20131231
  9. PETHIDINE [Concomitant]
     Indication: PAIN
     Route: 030
     Dates: start: 20131230, end: 20140102
  10. TRAMAL [Concomitant]
     Indication: PAIN
     Route: 042
     Dates: start: 20131225, end: 20131231

REACTIONS (2)
  - Demyelination [Fatal]
  - Hyponatraemia [Recovered/Resolved with Sequelae]
